FAERS Safety Report 8217493-4 (Version None)
Quarter: 2012Q1

REPORT INFORMATION
  Report Type: 
  Country: None (occurrence: None)
  Receive Date: 20120315
  Receipt Date: 20120229
  Transmission Date: 20120608
  Serious: Yes (Hospitalization)
  Sender: FDA-Public Use
  Company Number: 2010SGN00089

PATIENT
  Age: 21 Year
  Sex: Female
  Weight: 46.6 kg

DRUGS (23)
  1. BLEOMYCIN (BLEAOMYCIN SULFATE) [Suspect]
     Indication: HODGKIN'S DISEASE
     Dosage: 10 UNITS/M2, Q14D, INTRAVENOUS
     Route: 042
     Dates: start: 20100318, end: 20100723
  2. HALOPERIDOL [Concomitant]
  3. ULTRAM [Concomitant]
  4. OTHER DERMATOLOGICALS [Concomitant]
  5. KLOR-CON [Concomitant]
  6. DACARBAZINE [Suspect]
     Indication: HODGKIN'S DISEASE
     Dosage: 375 MG/M2, Q14D, INTRAVENOUS
     Route: 042
     Dates: start: 20100318, end: 20100804
  7. YAZ [Concomitant]
  8. ZOFRAN [Concomitant]
  9. OTHER DERMATOLOGICIALS [Concomitant]
  10. PRILOSEC [Concomitant]
  11. PEPCID [Concomitant]
  12. MELOXICAM [Concomitant]
  13. SGN-35 (CAC10-VCMMAE) INJECTION [Suspect]
     Indication: HODGKIN'S DISEASE
     Dosage: 0.6 MG/'KG, Q14D, INTERVENOUS
     Route: 042
     Dates: start: 20100318, end: 20100804
  14. MIRALAX [Concomitant]
  15. SOMA [Concomitant]
  16. SENOKOT (SENNA ALEXANDRINA) [Concomitant]
  17. MULTIVITAMIN [Concomitant]
  18. DOXORUBICIN HYDROCHLORIDE [Suspect]
     Indication: HODGKIN'S DISEASE
     Dosage: 25 MG/M2, Q14D, INTRAVENOUS
     Route: 042
     Dates: start: 20100318, end: 20100804
  19. VINBLASTINE SULFATE [Suspect]
     Indication: HODGKIN'S DISEASE
     Dosage: 6 MG/M2, Q14D, INTRAVENOUS
     Route: 042
     Dates: start: 20100318, end: 20100804
  20. ATIVAN [Concomitant]
  21. DARVON [Concomitant]
  22. DIPHENHYDRAMINE HCL [Concomitant]
  23. NITROSTAT [Concomitant]

REACTIONS (15)
  - PULMONARY TOXICITY [None]
  - PYREXIA [None]
  - LUNG INFILTRATION [None]
  - DYSPNOEA [None]
  - PLATELET COUNT DECREASED [None]
  - HAEMATOCRIT DECREASED [None]
  - WHITE BLOOD CELL COUNT DECREASED [None]
  - TACHYCARDIA [None]
  - PNEUMONITIS [None]
  - CARBON MONOXIDE DIFFUSING CAPACITY DECREASED [None]
  - PRODUCTIVE COUGH [None]
  - HYPOTENSION [None]
  - FUNGAL INFECTION [None]
  - RESPIRATORY FAILURE [None]
  - HAEMOGLOBIN DECREASED [None]
